FAERS Safety Report 5557692-3 (Version None)
Quarter: 2007Q4

REPORT INFORMATION
  Report Type: 
  Country: None (occurrence: None)
  Receive Date: 20071214
  Receipt Date: 20071003
  Transmission Date: 20080405
  Serious: No
  Sender: FDA-Public Use
  Company Number: US-AMGEN-KDL243745

PATIENT
  Sex: Male

DRUGS (1)
  1. ENBREL [Suspect]
     Indication: PSORIASIS
     Route: 058
     Dates: start: 20070831

REACTIONS (5)
  - DYSPHAGIA [None]
  - DYSPHONIA [None]
  - GOITRE [None]
  - PHARYNGOLARYNGEAL PAIN [None]
  - THYROID PAIN [None]
